FAERS Safety Report 22535072 (Version 1)
Quarter: 2023Q2

REPORT INFORMATION
  Report Type: Spontaneous
  Country: US (occurrence: US)
  Receive Date: 20230608
  Receipt Date: 20230608
  Transmission Date: 20230721
  Serious: Yes (Other)
  Sender: FDA-Public Use
  Company Number: US-BRISTOL-MYERS SQUIBB COMPANY-2023-080547

PATIENT
  Sex: Female

DRUGS (2)
  1. OPDIVO [Suspect]
     Active Substance: NIVOLUMAB
     Indication: Product used for unknown indication
  2. YERVOY [Suspect]
     Active Substance: IPILIMUMAB
     Indication: Product used for unknown indication

REACTIONS (11)
  - Diarrhoea [Unknown]
  - Pain in extremity [Unknown]
  - Decreased appetite [Unknown]
  - Weight decreased [Unknown]
  - Peripheral swelling [Unknown]
  - Abdominal distension [Unknown]
  - Vomiting [Unknown]
  - Fluid retention [Unknown]
  - Fatigue [Unknown]
  - Liver disorder [Unknown]
  - Metastasis [Unknown]
